FAERS Safety Report 21714441 (Version 1)
Quarter: 2022Q4

REPORT INFORMATION
  Report Type: Spontaneous
  Country: US (occurrence: None)
  Receive Date: 20221211
  Receipt Date: 20221211
  Transmission Date: 20230113
  Serious: No
  Sender: FDA-Public Use
  Company Number: None

PATIENT
  Sex: Male

DRUGS (12)
  1. AFINITOR [Suspect]
     Active Substance: EVEROLIMUS
     Dosage: FREQUENCY : DAILY;?
     Route: 048
  2. AMBIEN [Concomitant]
  3. aspirin [Concomitant]
  4. CRESTOR [Concomitant]
     Active Substance: ROSUVASTATIN CALCIUM
  5. LISINOPRIL [Concomitant]
  6. LOMOTIL [Concomitant]
     Active Substance: ATROPINE SULFATE\DIPHENOXYLATE HYDROCHLORIDE
  7. MAGNESIUM OXIDE [Concomitant]
  8. METOPROLOL [Concomitant]
     Active Substance: METOPROLOL
  9. NITROSTAT [Concomitant]
  10. OMEPRAZOLE [Concomitant]
  11. PAROXETINE [Concomitant]
     Active Substance: PAROXETINE
  12. TYLENOL [Concomitant]
     Active Substance: ACETAMINOPHEN

REACTIONS (1)
  - Pneumothorax [None]
